FAERS Safety Report 4678394-1 (Version None)
Quarter: 2005Q2

REPORT INFORMATION
  Report Type: 
  Country: None (occurrence: None)
  Receive Date: 20050527
  Receipt Date: 20050512
  Transmission Date: 20051028
  Serious: Yes (Hospitalization, Other)
  Sender: FDA-Public Use
  Company Number: A-US2005-09586

PATIENT
  Age: 79 Year
  Sex: Female
  Weight: 44.4 kg

DRUGS (18)
  1. TRACLEER [Suspect]
     Indication: PULMONARY HYPERTENSION
     Dosage: 125 MG, BID; ORAL (SEE IMAGE)
     Route: 048
     Dates: start: 20031002, end: 20031104
  2. TRACLEER [Suspect]
     Indication: PULMONARY HYPERTENSION
     Dosage: 125 MG, BID; ORAL (SEE IMAGE)
     Route: 048
     Dates: start: 20031105, end: 20050401
  3. TRACLEER [Suspect]
     Indication: PULMONARY HYPERTENSION
     Dosage: 125 MG, BID; ORAL (SEE IMAGE)
     Route: 048
     Dates: start: 20050415
  4. CLINORIL [Suspect]
     Dates: start: 20030801
  5. IMURAN [Suspect]
     Dates: start: 20030801
  6. METHOTREXATE [Suspect]
     Dosage: 2.5 MG TIW,
     Dates: start: 19981101, end: 20030101
  7. LANOXIN [Concomitant]
  8. LORAZEPAM [Concomitant]
  9. SYNTHROID [Concomitant]
  10. GABAPENTIN [Concomitant]
  11. PREVACID [Concomitant]
  12. COUMADIN [Concomitant]
  13. CIALIS [Concomitant]
  14. TYLENOL [Concomitant]
  15. MULTIPLE VITAMINS (ERGOCALCIFEROL, FOLIC ACID, RETINOL, ASCORBIC ACID, [Concomitant]
  16. CALCIUM GLUCONATE [Concomitant]
  17. LASIX [Concomitant]
  18. NIFEDIPINE [Concomitant]

REACTIONS (7)
  - ASCITES [None]
  - AUTOIMMUNE HEPATITIS [None]
  - BALANCE DISORDER [None]
  - HEPATIC CIRRHOSIS [None]
  - HEPATITIS [None]
  - LACTOSE INTOLERANCE [None]
  - PANCREATITIS ACUTE [None]
